FAERS Safety Report 15694023 (Version 1)
Quarter: 2018Q4

REPORT INFORMATION
  Report Type: Spontaneous
  Country: CA (occurrence: CA)
  Receive Date: 20181206
  Receipt Date: 20181206
  Transmission Date: 20190205
  Serious: Yes (Other)
  Sender: FDA-Public Use
  Company Number: CA-SA-2018SA327060

PATIENT
  Age: 60 Year
  Sex: Female

DRUGS (8)
  1. RIFAMPICIN [Suspect]
     Active Substance: RIFAMPIN
     Indication: PRODUCT USED FOR UNKNOWN INDICATION
     Dosage: 150 MG, BID
  2. OCALIVA [Suspect]
     Active Substance: OBETICHOLIC ACID
     Dosage: 10 MG, QD
     Route: 048
  3. FENOFIBRATE. [Concomitant]
     Active Substance: FENOFIBRATE
     Dosage: UNK
  4. HYDROXYZINE [Concomitant]
     Active Substance: HYDROXYZINE HYDROCHLORIDE
     Dosage: UNK
  5. OCALIVA [Suspect]
     Active Substance: OBETICHOLIC ACID
     Indication: PRIMARY BILIARY CHOLANGITIS
     Dosage: 5 MG, QD
     Route: 048
  6. OCALIVA [Suspect]
     Active Substance: OBETICHOLIC ACID
     Dosage: 5 MG, QD
     Route: 048
  7. URSODEOXYCHOLIC ACID [Suspect]
     Active Substance: URSODIOL
     Indication: PRODUCT USED FOR UNKNOWN INDICATION
     Dosage: 500 MG, BID
  8. RIFAMPICIN [Suspect]
     Active Substance: RIFAMPIN
     Indication: PRURITUS
     Dosage: 150 MG, QD

REACTIONS (21)
  - Fatigue [Unknown]
  - Alanine aminotransferase increased [Unknown]
  - Headache [Unknown]
  - Nausea [Unknown]
  - Nervousness [Unknown]
  - Dysuria [Unknown]
  - Insomnia [Unknown]
  - Hot flush [Unknown]
  - Sinusitis [Unknown]
  - Chills [Unknown]
  - Aspartate aminotransferase increased [Unknown]
  - Blood alkaline phosphatase increased [Unknown]
  - Vomiting [Unknown]
  - Abdominal pain upper [Unknown]
  - Rash [Unknown]
  - Nephrolithiasis [Unknown]
  - Eye pain [Unknown]
  - Myalgia [Unknown]
  - Pruritus [Unknown]
  - Ocular icterus [Unknown]
  - Urticaria [Unknown]
